FAERS Safety Report 20430510 (Version 2)
Quarter: 2022Q1

REPORT INFORMATION
  Report Type: Report from Study
  Country: FR (occurrence: FR)
  Receive Date: 20220204
  Receipt Date: 20220330
  Transmission Date: 20220423
  Serious: Yes (Hospitalization)
  Sender: FDA-Public Use
  Company Number: FR-SERVIER-S20009885

PATIENT

DRUGS (5)
  1. ONCASPAR [Suspect]
     Active Substance: PEGASPARGASE
     Indication: Acute lymphocytic leukaemia
     Dosage: 4200 IU, QD
     Route: 042
     Dates: start: 20190211, end: 20190211
  2. TN UNSPECIFIED [Concomitant]
     Indication: Acute lymphocytic leukaemia
     Dosage: 16.2 MG, ON DAYS 1-21
     Route: 048
     Dates: start: 20190208, end: 20190228
  3. TN UNSPECIFIED [Concomitant]
     Indication: Acute lymphocytic leukaemia
     Dosage: 2 MG, ON DAYS 1, 8, 15 AND 22
     Route: 042
     Dates: start: 20190208, end: 20190301
  4. ADRIAMYCIN [Concomitant]
     Active Substance: DOXORUBICIN HYDROCHLORIDE
     Indication: Acute lymphocytic leukaemia
     Dosage: 50 MG, ON DAYS 1, 8, 15 AND 22
     Route: 042
     Dates: start: 20190208, end: 20190301
  5. TN UNSPECIFIED [Concomitant]
     Indication: Acute lymphocytic leukaemia
     Dosage: 15 MG, ON DAYS 4 AND 31
     Route: 037
     Dates: start: 20190211

REACTIONS (3)
  - Mucosal inflammation [Recovered/Resolved]
  - Aplasia [Recovered/Resolved]
  - Weight decreased [Recovered/Resolved]

NARRATIVE: CASE EVENT DATE: 20190306
